FAERS Safety Report 17638404 (Version 3)
Quarter: 2020Q2

REPORT INFORMATION
  Report Type: Report from Study
  Country: IT (occurrence: IT)
  Receive Date: 20200407
  Receipt Date: 20200528
  Transmission Date: 20200713
  Serious: Yes (Other)
  Sender: FDA-Public Use
  Company Number: NVSC2020IT088004

PATIENT
  Age: 30 Year
  Sex: Male

DRUGS (2)
  1. DICLOFENAC DIETHYLAMINE [Suspect]
     Active Substance: DICLOFENAC DIETHYLAMINE
     Indication: INTENTIONAL SELF-INJURY
     Dosage: 5 DF, SINGLE, IN TOTAL
     Route: 048
     Dates: start: 20191128, end: 20191128
  2. EN [Suspect]
     Active Substance: DELORAZEPAM
     Indication: INTENTIONAL SELF-INJURY
     Dosage: 20 MG, IN TOTAL
     Route: 048
     Dates: start: 20191128, end: 20191128

REACTIONS (2)
  - Drug abuse [Recovering/Resolving]
  - Sopor [Recovering/Resolving]

NARRATIVE: CASE EVENT DATE: 20191128
